FAERS Safety Report 8673170 (Version 2)
Quarter: 2013Q1

REPORT INFORMATION
  Report Type: Spontaneous
  Country: US (occurrence: US)
  Receive Date: 20120719
  Receipt Date: 20130301
  Transmission Date: 20140127
  Serious: Yes (Other)
  Sender: FDA-Public Use
  Company Number: US-BAYER-2012-072015

PATIENT
  Age: 48 Year
  Sex: Female
  Weight: 64.85 kg

DRUGS (1)
  1. AVELOX [Suspect]
     Indication: URINARY TRACT INFECTION
     Dosage: 400 MG, UNK
     Route: 048
     Dates: start: 20100610, end: 20100610

REACTIONS (6)
  - Anaphylactic reaction [Recovered/Resolved]
  - Rash erythematous [Recovered/Resolved]
  - Rash [Recovered/Resolved]
  - Hypotension [Recovered/Resolved]
  - Lip swelling [Recovered/Resolved]
  - Lymphadenopathy [Recovered/Resolved]
